FAERS Safety Report 14884629 (Version 2)
Quarter: 2018Q2

REPORT INFORMATION
  Report Type: Spontaneous
  Country: US (occurrence: JP)
  Receive Date: 20180511
  Receipt Date: 20180601
  Transmission Date: 20180711
  Serious: Yes (Other)
  Sender: FDA-Public Use
  Company Number: US-SUNOVION-2018SUN001917

PATIENT
  Age: 72 Year
  Sex: Male

DRUGS (3)
  1. VOTRIENT [Suspect]
     Active Substance: PAZOPANIB HYDROCHLORIDE
     Indication: RENAL CELL CARCINOMA STAGE I
     Dosage: 800 MG, QD
     Route: 048
     Dates: start: 20170813
  2. INDACATEROL [Suspect]
     Active Substance: INDACATEROL
     Indication: CHRONIC OBSTRUCTIVE PULMONARY DISEASE
     Dosage: UNK
     Route: 055
  3. VOTRIENT [Suspect]
     Active Substance: PAZOPANIB HYDROCHLORIDE
     Dosage: 600 MG, QD
     Route: 048
     Dates: start: 20170914

REACTIONS (6)
  - Therapeutic response decreased [Unknown]
  - Hypertension [Recovered/Resolved]
  - Protein urine [Not Recovered/Not Resolved]
  - Dysgeusia [Recovered/Resolved]
  - Hepatic function abnormal [Recovered/Resolved]
  - Skin depigmentation [Unknown]

NARRATIVE: CASE EVENT DATE: 20170816
